FAERS Safety Report 20381882 (Version 3)
Quarter: 2022Q1

REPORT INFORMATION
  Report Type: Other
  Country: ZA (occurrence: ZA)
  Receive Date: 20220127
  Receipt Date: 20220216
  Transmission Date: 20220423
  Serious: Yes (Other)
  Sender: FDA-Public Use
  Company Number: ZA-MACLEODS PHARMA UK LTD-MAC2022034157

PATIENT

DRUGS (3)
  1. EMTRICITABINE\TENOFOVIR DISOPROXIL [Suspect]
     Active Substance: EMTRICITABINE\TENOFOVIR DISOPROXIL
     Indication: HIV infection
     Dosage: 500 MILLIGRAM, QD (1 COURSE), EXPOSURE AT FIRST TRIMESTER OF EXPOSURE), PRIOR TO CONCEPTION,
     Route: 048
     Dates: start: 20180118, end: 20210301
  2. EFAVIRENZ\EMTRICITABINE\TENOFOVIR DISOPROXIL MALEATE [Suspect]
     Active Substance: EFAVIRENZ\EMTRICITABINE\TENOFOVIR DISOPROXIL MALEATE
     Indication: HIV infection
     Dosage: UNK (1 COURSE) EXPOSURE AT FIRST TRIMESTER, (EFAVIRENZ/TENOFOVIR DISOPROXIL MALEATE/EMTRICITABINE-MY
     Route: 065
     Dates: start: 20210301
  3. TIVICAY [Suspect]
     Active Substance: DOLUTEGRAVIR SODIUM
     Indication: HIV infection
     Dosage: 50 MILLIGRAM, QD, EXPOSURE AT 1 TRIMESTER, PRIOR TO CONCEPTION, 1 COURSE
     Route: 048
     Dates: start: 20180118, end: 20210301

REACTIONS (2)
  - Stillbirth [Unknown]
  - Maternal exposure during pregnancy [Unknown]

NARRATIVE: CASE EVENT DATE: 20210615
